FAERS Safety Report 4502163-6 (Version None)
Quarter: 2004Q4

REPORT INFORMATION
  Report Type: 
  Country: None (occurrence: None)
  Receive Date: 20041116
  Receipt Date: 20040316
  Transmission Date: 20050328
  Serious: Yes (Other)
  Sender: FDA-Public Use
  Company Number: GB-ROCHE-361839

PATIENT
  Sex: Female
  Weight: 52 kg

DRUGS (1)
  1. LARIAM [Suspect]
     Indication: UNEVALUABLE EVENT
     Route: 048
     Dates: start: 20040121, end: 20040303

REACTIONS (3)
  - ABORTION SPONTANEOUS [None]
  - DRUG EXPOSURE DURING PREGNANCY [None]
  - ECTOPIC PREGNANCY [None]
